FAERS Safety Report 4551419-X (Version None)
Quarter: 2005Q1

REPORT INFORMATION
  Report Type: 
  Country: None (occurrence: None)
  Receive Date: 20050107
  Receipt Date: 20050103
  Transmission Date: 20050727
  Serious: Yes (Hospitalization, Other)
  Sender: FDA-Public Use
  Company Number: FRWYE222222NOV04

PATIENT
  Age: 39 Year
  Sex: Male

DRUGS (5)
  1. TAZOCILLINE (PIPERACILLIN/TAZOBACTAM, INJECTION) [Suspect]
     Indication: POSTOPERATIVE ABSCESS
     Dosage: 4 G 3X PER 1 DAY INTRAVENOUS
     Route: 042
     Dates: start: 20040101, end: 20041002
  2. AUGMENTIN '125' [Suspect]
     Indication: POSTOPERATIVE ABSCESS
     Dosage: 3 G 1X PER 1 DAY INTRAVENOUS
     Route: 042
     Dates: start: 20040926, end: 20040930
  3. FLAGYL [Suspect]
     Indication: POSTOPERATIVE ABSCESS
     Dosage: 1.5 G 1X PER 1 DAY INTRAVENOUS
     Route: 042
     Dates: start: 20040930, end: 20041001
  4. ROCEPHIN [Suspect]
     Indication: POSTOPERATIVE ABSCESS
     Dosage: 1 G 1X PER 1 DAY INTRAVENOUS
     Route: 042
     Dates: start: 20040930, end: 20041001
  5. TIBERAL (ORNIDAZOLE) [Suspect]
     Indication: POSTOPERATIVE ABSCESS
     Dosage: INTRAVENOUS
     Route: 042
     Dates: start: 20040926, end: 20040930

REACTIONS (3)
  - CONDITION AGGRAVATED [None]
  - DRUG HYPERSENSITIVITY [None]
  - PYREXIA [None]
